FAERS Safety Report 22068788 (Version 1)
Quarter: 2023Q1

REPORT INFORMATION
  Report Type: Spontaneous
  Country: CN (occurrence: CN)
  Receive Date: 20230307
  Receipt Date: 20230307
  Transmission Date: 20230417
  Serious: Yes (Hospitalization, Other)
  Sender: FDA-Public Use
  Company Number: None

PATIENT
  Age: 53 Year
  Sex: Male
  Weight: 70 kg

DRUGS (21)
  1. CYCLOPHOSPHAMIDE [Suspect]
     Active Substance: CYCLOPHOSPHAMIDE
     Indication: T-cell lymphoma stage IV
     Dosage: 1.35 G, QD, DILUTED WITH 0.9% SODIUM CHLORIDE (500 ML)
     Route: 041
     Dates: start: 20230202, end: 20230202
  2. CYCLOPHOSPHAMIDE [Suspect]
     Active Substance: CYCLOPHOSPHAMIDE
     Indication: Epstein-Barr virus infection
  3. CYCLOPHOSPHAMIDE [Suspect]
     Active Substance: CYCLOPHOSPHAMIDE
     Indication: Metastatic lymphoma
  4. CYCLOPHOSPHAMIDE [Suspect]
     Active Substance: CYCLOPHOSPHAMIDE
     Indication: Chemotherapy
  5. SODIUM CHLORIDE [Suspect]
     Active Substance: SODIUM CHLORIDE
     Indication: Medication dilution
     Dosage: 500 ML, QD, USED TO DILUTE CYCLOPHOSPHAMIDE (1.35 G), CONCENTRATION: 0.9%, DOSAGE FORM: INJECTION
     Route: 041
     Dates: start: 20230202, end: 20230202
  6. SODIUM CHLORIDE [Suspect]
     Active Substance: SODIUM CHLORIDE
     Dosage: 100 ML, QD, USED TO DILUTE VINCRISTINE SULFATE (2 MG), CONCENTRATION: 0.9 %, DOSAGE FORM: INJECTION
     Route: 041
     Dates: start: 20230202, end: 20230202
  7. SODIUM CHLORIDE [Suspect]
     Active Substance: SODIUM CHLORIDE
     Dosage: 500 ML, QD, USED TO DILUTE ETOPSIDE (0.1 G), CONCENTRATION: 0.9%, DOSAGE FORM: INJECTION
     Route: 041
     Dates: start: 20230202, end: 20230204
  8. SODIUM CHLORIDE [Suspect]
     Active Substance: SODIUM CHLORIDE
     Dosage: 500 ML, QD, USED TO DILUTE ETOPSIDE (0.08 G), CONCENTRATION: 0.9%, DOSAGE FORM: INJECTION
     Route: 041
     Dates: start: 20230202, end: 20230204
  9. DEXTROSE [Suspect]
     Active Substance: DEXTROSE
     Indication: Medication dilution
     Dosage: 250 ML, QD, USED TO DILUTE PIRARUBICIN HYDROCHLORIDE (90 MG), CONCENTRATION: 5%, DOSAGE FORM: INJECT
     Route: 041
     Dates: start: 20230202, end: 20230202
  10. ETOPOSIDE [Suspect]
     Active Substance: ETOPOSIDE
     Indication: T-cell lymphoma stage IV
     Dosage: 0.1 G, QD, DILUTED WITH 0.9% SODIUM CHORIDE (500 ML)
     Route: 041
     Dates: start: 20230202, end: 20230204
  11. ETOPOSIDE [Suspect]
     Active Substance: ETOPOSIDE
     Indication: Epstein-Barr virus infection
     Dosage: 0.08 G, QD, DILUTED WITH 0.9% SODIUM CHORIDE (500 ML)
     Route: 041
     Dates: start: 20230202, end: 20230204
  12. ETOPOSIDE [Suspect]
     Active Substance: ETOPOSIDE
     Indication: Metastatic lymphoma
  13. ETOPOSIDE [Suspect]
     Active Substance: ETOPOSIDE
     Indication: Chemotherapy
  14. PIRARUBICIN HYDROCHLORIDE [Suspect]
     Active Substance: PIRARUBICIN HYDROCHLORIDE
     Indication: T-cell lymphoma stage IV
     Dosage: 90 MG, QD, DILUTED WITH 5% GLUCOSE (250 ML), DOSAGE FORM: POWDER
     Route: 041
     Dates: start: 20230202, end: 20230202
  15. PIRARUBICIN HYDROCHLORIDE [Suspect]
     Active Substance: PIRARUBICIN HYDROCHLORIDE
     Indication: Epstein-Barr virus infection
  16. PIRARUBICIN HYDROCHLORIDE [Suspect]
     Active Substance: PIRARUBICIN HYDROCHLORIDE
     Indication: Metastatic lymphoma
  17. PIRARUBICIN HYDROCHLORIDE [Suspect]
     Active Substance: PIRARUBICIN HYDROCHLORIDE
     Indication: Chemotherapy
  18. VINCRISTINE SULFATE [Suspect]
     Active Substance: VINCRISTINE SULFATE
     Indication: T-cell lymphoma stage IV
     Dosage: 2 MG, QD, DILUTED WITH 0.9% SODIUM CHLORIDE (100 ML), DOSAGE FORM: POWDER
     Route: 041
     Dates: start: 20230202, end: 20230202
  19. VINCRISTINE SULFATE [Suspect]
     Active Substance: VINCRISTINE SULFATE
     Indication: Epstein-Barr virus infection
  20. VINCRISTINE SULFATE [Suspect]
     Active Substance: VINCRISTINE SULFATE
     Indication: Metastatic lymphoma
  21. VINCRISTINE SULFATE [Suspect]
     Active Substance: VINCRISTINE SULFATE
     Indication: Chemotherapy

REACTIONS (1)
  - Myelosuppression [Recovering/Resolving]

NARRATIVE: CASE EVENT DATE: 20230213
